FAERS Safety Report 5487743-6 (Version None)
Quarter: 2007Q3

REPORT INFORMATION
  Report Type: 
  Country: None (occurrence: None)
  Receive Date: 20070928
  Receipt Date: 20070530
  Transmission Date: 20080115
  Serious: Yes (Hospitalization)
  Sender: FDA-Public Use
  Company Number: 157037USA

PATIENT
  Sex: Female

DRUGS (1)
  1. CARBIDOPA AND LEVODOPA [Suspect]
     Dosage: 25 MG/100MG, 1.5 TABLETS/DAY (1 IN 1 D), ORAL
     Route: 048
     Dates: start: 20070201, end: 20070518

REACTIONS (3)
  - CHOKING [None]
  - DYSPHAGIA [None]
  - WEIGHT DECREASED [None]
